FAERS Safety Report 4281934-8 (Version None)
Quarter: 2004Q1

REPORT INFORMATION
  Report Type: 
  Country: None (occurrence: None)
  Receive Date: 20040128
  Receipt Date: 20040116
  Transmission Date: 20041129
  Serious: Yes (Other)
  Sender: FDA-Public Use
  Company Number: 200410135EU

PATIENT
  Age: 3 Year
  Sex: Female

DRUGS (1)
  1. LANTUS [Suspect]
     Indication: DIABETES MELLITUS INSULIN-DEPENDENT
     Dosage: 14 IU/DAY SC
     Route: 058
     Dates: start: 20030901

REACTIONS (3)
  - ABORTION SPONTANEOUS [None]
  - COMPLICATIONS OF MATERNAL EXPOSURE TO THERAPEUTIC DRUGS [None]
  - MATERNAL DRUGS AFFECTING FOETUS [None]
